FAERS Safety Report 6431469-9 (Version None)
Quarter: 2009Q4

REPORT INFORMATION
  Report Type: 
  Country: None (occurrence: None)
  Receive Date: 20091105
  Receipt Date: 20091105
  Transmission Date: 20100525
  Serious: Yes (Other)
  Sender: FDA-Public Use
  Company Number: None

PATIENT
  Age: 15 Year
  Sex: Female

DRUGS (2)
  1. ZOFRAN [Suspect]
     Indication: PAIN
     Dosage: X 1 IV
     Route: 042
  2. DILAUDID [Suspect]
     Dosage: X1 IV
     Route: 042

REACTIONS (2)
  - PRURITUS [None]
  - RASH ERYTHEMATOUS [None]
